FAERS Safety Report 16454908 (Version 1)
Quarter: 2019Q2

REPORT INFORMATION
  Report Type: Spontaneous
  Country: SE (occurrence: SE)
  Receive Date: 20190619
  Receipt Date: 20190619
  Transmission Date: 20190711
  Serious: Yes (Hospitalization)
  Sender: FDA-Public Use
  Company Number: PHHY2019SE138190

PATIENT
  Age: 72 Year
  Sex: Female

DRUGS (2)
  1. LAMOTRIGINE. [Suspect]
     Active Substance: LAMOTRIGINE
     Indication: SEIZURE
     Route: 065
  2. LACOSAMIDE. [Suspect]
     Active Substance: LACOSAMIDE
     Indication: SEIZURE
     Dosage: 5.6 G, UNK
     Route: 065

REACTIONS (12)
  - Supraventricular extrasystoles [Recovering/Resolving]
  - Loss of consciousness [Recovered/Resolved]
  - Hyperventilation [Recovered/Resolved]
  - Cardiac arrest [Recovering/Resolving]
  - Bradycardia [Recovered/Resolved]
  - Heart rate irregular [Recovered/Resolved]
  - Electrocardiogram QRS complex prolonged [Recovering/Resolving]
  - Status epilepticus [Recovering/Resolving]
  - Sinus arrest [Recovering/Resolving]
  - Pupillary reflex impaired [Recovering/Resolving]
  - Ventricular tachycardia [Recovering/Resolving]
  - Mydriasis [Recovering/Resolving]
